FAERS Safety Report 5409348-5 (Version None)
Quarter: 2007Q3

REPORT INFORMATION
  Report Type: 
  Country: None (occurrence: None)
  Receive Date: 20070809
  Receipt Date: 20070731
  Transmission Date: 20080115
  Serious: Yes (Hospitalization)
  Sender: FDA-Public Use
  Company Number: BR-JNJFOC-20070800659

PATIENT
  Age: 13 Year
  Sex: Female
  Weight: 30 kg

DRUGS (1)
  1. ORTHO EVRA [Suspect]
     Indication: CONTRACEPTION

REACTIONS (4)
  - INAPPROPRIATE SCHEDULE OF DRUG ADMINISTRATION [None]
  - METRORRHAGIA [None]
  - MOTOR DYSFUNCTION [None]
  - PHARMACEUTICAL PRODUCT COMPLAINT [None]
